FAERS Safety Report 8044735-0 (Version None)
Quarter: 2012Q1

REPORT INFORMATION
  Report Type: 
  Country: None (occurrence: None)
  Receive Date: 20120113
  Receipt Date: 20120105
  Transmission Date: 20120608
  Serious: Yes (Hospitalization)
  Sender: FDA-Public Use
  Company Number: JP-SANOFI-AVENTIS-2011SA078760

PATIENT
  Age: 76 Year
  Sex: Male
  Weight: 45 kg

DRUGS (21)
  1. GIMERACIL/OTERACIL POTASSIUM/TEGAFUR [Suspect]
     Indication: GASTRIC CANCER
     Route: 048
     Dates: start: 20110729
  2. GIMERACIL/OTERACIL POTASSIUM/TEGAFUR [Suspect]
     Route: 048
     Dates: start: 20110603, end: 20110617
  3. PLATELETS [Concomitant]
     Dates: start: 20111225
  4. OXALIPLATIN [Suspect]
     Route: 041
     Dates: start: 20110826
  5. RISUMIC [Concomitant]
     Indication: BLOOD PRESSURE DECREASED
     Route: 048
     Dates: start: 20110922
  6. GOSHAJINKIGAN [Concomitant]
     Indication: NERVOUS SYSTEM DISORDER
     Route: 048
     Dates: start: 20111104
  7. BLADDERON [Concomitant]
     Indication: POLLAKIURIA
     Route: 048
     Dates: start: 20111110
  8. OXALIPLATIN [Suspect]
     Route: 041
     Dates: start: 20111104
  9. GIMERACIL/OTERACIL POTASSIUM/TEGAFUR [Suspect]
     Route: 048
     Dates: start: 20111104, end: 20111115
  10. GIMERACIL/OTERACIL POTASSIUM/TEGAFUR [Suspect]
     Route: 048
     Dates: start: 20111014
  11. OXALIPLATIN [Suspect]
     Indication: GASTRIC CANCER
     Route: 041
     Dates: start: 20110603, end: 20110603
  12. OXALIPLATIN [Suspect]
     Route: 041
     Dates: start: 20110708
  13. OXALIPLATIN [Suspect]
     Route: 041
     Dates: start: 20110916
  14. UREA [Concomitant]
     Indication: DRY SKIN
     Dates: start: 20110819
  15. GIMERACIL/OTERACIL POTASSIUM/TEGAFUR [Suspect]
     Route: 048
     Dates: start: 20110708
  16. OXALIPLATIN [Suspect]
     Route: 041
     Dates: start: 20110729
  17. OXALIPLATIN [Suspect]
     Dosage: DOSE: 83 MG/BODY
     Route: 041
     Dates: start: 20111209, end: 20111209
  18. OXALIPLATIN [Suspect]
     Route: 041
     Dates: start: 20111014
  19. GIMERACIL/OTERACIL POTASSIUM/TEGAFUR [Suspect]
     Route: 048
     Dates: start: 20111209, end: 20111223
  20. GIMERACIL/OTERACIL POTASSIUM/TEGAFUR [Suspect]
     Route: 048
     Dates: start: 20110826
  21. GIMERACIL/OTERACIL POTASSIUM/TEGAFUR [Suspect]
     Route: 048
     Dates: start: 20110916

REACTIONS (3)
  - PNEUMONIA [None]
  - ARRHYTHMIA [None]
  - FEBRILE NEUTROPENIA [None]
